FAERS Safety Report 14891150 (Version 1)
Quarter: 2018Q2

REPORT INFORMATION
  Report Type: Spontaneous
  Country: US (occurrence: US)
  Receive Date: 20180514
  Receipt Date: 20180514
  Transmission Date: 20180711
  Serious: No
  Sender: FDA-Public Use
  Company Number: US-BAYER-2018-091905

PATIENT
  Sex: Male

DRUGS (2)
  1. ALEVE [Suspect]
     Active Substance: NAPROXEN SODIUM
     Dosage: UNK
  2. PLEXUS [Concomitant]
     Dosage: UNK
     Dates: start: 201711

REACTIONS (2)
  - Product use issue [None]
  - Product use in unapproved indication [Unknown]
